FAERS Safety Report 14071050 (Version 3)
Quarter: 2018Q4

REPORT INFORMATION
  Report Type: Spontaneous
  Country: US (occurrence: US)
  Receive Date: 20171010
  Receipt Date: 20181120
  Transmission Date: 20190204
  Serious: No
  Sender: FDA-Public Use
  Company Number: US-JNJFOC-20170405119

PATIENT
  Age: 80 Year
  Sex: Female

DRUGS (18)
  1. IMBRUVICA [Suspect]
     Active Substance: IBRUTINIB
     Indication: CHRONIC LYMPHOCYTIC LEUKAEMIA
     Route: 048
     Dates: start: 20170110
  2. PREDNISONE. [Concomitant]
     Active Substance: PREDNISONE
     Dates: end: 20180301
  3. GINGER. [Concomitant]
     Active Substance: GINGER
  4. IMBRUVICA [Suspect]
     Active Substance: IBRUTINIB
     Indication: CHRONIC LYMPHOCYTIC LEUKAEMIA
     Route: 048
     Dates: start: 201706
  5. FOLIC ACID. [Concomitant]
     Active Substance: FOLIC ACID
  6. VACCINIUM MACROCARPON [Concomitant]
     Active Substance: CRANBERRY
  7. MULTIVITAMINS [Concomitant]
     Active Substance: VITAMINS
  8. BILBERRY [Concomitant]
     Active Substance: BILBERRY
  9. MECLIZINE HYDROCHLORIDE. [Concomitant]
     Active Substance: MECLIZINE HYDROCHLORIDE
  10. ORENCIA [Concomitant]
     Active Substance: ABATACEPT
     Dates: end: 20180301
  11. LOSARTAN POTASSIUM. [Concomitant]
     Active Substance: LOSARTAN POTASSIUM
     Dates: end: 20180301
  12. IMBRUVICA [Suspect]
     Active Substance: IBRUTINIB
     Indication: CHRONIC LYMPHOCYTIC LEUKAEMIA
     Route: 048
     Dates: start: 20170110, end: 20171003
  13. IMBRUVICA [Suspect]
     Active Substance: IBRUTINIB
     Indication: CHRONIC LYMPHOCYTIC LEUKAEMIA
     Route: 048
     Dates: start: 20170110
  14. CINNAMON. [Concomitant]
     Active Substance: CINNAMON
  15. DICLOFENAC [Concomitant]
     Active Substance: DICLOFENAC
     Dates: end: 20180301
  16. DEXTRIN [Concomitant]
     Active Substance: ICODEXTRIN
  17. COQ 10 [Concomitant]
     Active Substance: UBIDECARENONE
  18. TYLENOL [Concomitant]
     Active Substance: ACETAMINOPHEN
     Indication: ARTHRITIS
     Dosage: 8 HOUR

REACTIONS (7)
  - Arthralgia [Unknown]
  - Pain in extremity [Unknown]
  - Product use issue [Unknown]
  - Diarrhoea [Unknown]
  - Off label use [Unknown]
  - Vision blurred [Unknown]
  - Decreased appetite [Unknown]

NARRATIVE: CASE EVENT DATE: 20170110
